FAERS Safety Report 14170278 (Version 1)
Quarter: 2017Q4

REPORT INFORMATION
  Report Type: Spontaneous
  Country: US (occurrence: US)
  Receive Date: 20171108
  Receipt Date: 20171108
  Transmission Date: 20180321
  Serious: Yes (Other)
  Sender: FDA-Public Use
  Company Number: US-DEPOMED, INC.-US-2017DEP002129

PATIENT
  Sex: Female

DRUGS (1)
  1. NUCYNTA ER [Suspect]
     Active Substance: TAPENTADOL HYDROCHLORIDE
     Indication: NEURALGIA
     Dosage: 50 MG, BID
     Route: 048
     Dates: start: 2017, end: 201710

REACTIONS (3)
  - Diarrhoea [Unknown]
  - Ill-defined disorder [Unknown]
  - Urinary retention [Unknown]

NARRATIVE: CASE EVENT DATE: 2017
